FAERS Safety Report 6781658-9 (Version None)
Quarter: 2010Q2

REPORT INFORMATION
  Report Type: 
  Country: None (occurrence: None)
  Receive Date: 20100621
  Receipt Date: 20100614
  Transmission Date: 20101027
  Serious: Yes (Other)
  Sender: FDA-Public Use
  Company Number: CHPA2010JP08147

PATIENT
  Sex: Female

DRUGS (5)
  1. GLYSENNID [Suspect]
     Indication: CONSTIPATION
     Dosage: UNK, UNK
     Route: 048
     Dates: end: 20100101
  2. GLYSENNID [Suspect]
     Dosage: UNK, UNK
     Route: 048
     Dates: start: 20100201, end: 20100301
  3. DOGMATYL [Concomitant]
     Dosage: UNK, UNK
     Dates: end: 20100101
  4. BENZALIN [Concomitant]
     Dosage: UNK, UNK
     Dates: end: 20100101
  5. GASMOTIN [Concomitant]
     Dosage: UNK, UNK
     Dates: end: 20100101

REACTIONS (5)
  - ALANINE AMINOTRANSFERASE ABNORMAL [None]
  - ASPARTATE AMINOTRANSFERASE ABNORMAL [None]
  - GAMMA-GLUTAMYLTRANSFERASE ABNORMAL [None]
  - HEPATIC FUNCTION ABNORMAL [None]
  - LYMPHOCYTE STIMULATION TEST POSITIVE [None]
